FAERS Safety Report 7538980-8 (Version None)
Quarter: 2011Q2

REPORT INFORMATION
  Report Type: 
  Country: None (occurrence: None)
  Receive Date: 20110610
  Receipt Date: 20110608
  Transmission Date: 20111010
  Serious: Yes (Other)
  Sender: FDA-Public Use
  Company Number: JP-BAYER-2011-049356

PATIENT
  Age: 60 Year
  Sex: Female

DRUGS (2)
  1. GLUCOBAY [Suspect]
     Indication: DIABETES MELLITUS
     Dosage: 50 MG, TID
     Route: 048
     Dates: start: 20110602, end: 20110603
  2. CRESTOR [Concomitant]
     Dosage: DAILY DOSE 2.5 MG
     Route: 048

REACTIONS (1)
  - HAEMATOCHEZIA [None]
